FAERS Safety Report 4652381-1 (Version None)
Quarter: 2005Q2

REPORT INFORMATION
  Report Type: 
  Country: None (occurrence: None)
  Receive Date: 20050502
  Receipt Date: 20050502
  Transmission Date: 20051028
  Serious: No
  Sender: FDA-Public Use
  Company Number: None

PATIENT
  Age: 46 Year
  Sex: Male
  Weight: 75.7507 kg

DRUGS (4)
  1. OLANZAPINE [Suspect]
     Indication: AGITATION
     Dosage: 10MG  ONE DOSE INTRAMUSCU
     Route: 030
     Dates: start: 20050329, end: 20050425
  2. OLANZAPINE [Suspect]
     Indication: PSYCHOTIC DISORDER
     Dosage: 10MG  ONE DOSE INTRAMUSCU
     Route: 030
     Dates: start: 20050329, end: 20050425
  3. LORAZEPAM [Suspect]
     Indication: AGITATION
     Dosage: 2MG  ONE DOSE  INTRAMUSCU
     Route: 030
     Dates: start: 20050329, end: 20050329
  4. LORAZEPAM [Suspect]
     Indication: PSYCHOTIC DISORDER
     Dosage: 2MG  ONE DOSE  INTRAMUSCU
     Route: 030
     Dates: start: 20050329, end: 20050329

REACTIONS (2)
  - HYPOTENSION [None]
  - LETHARGY [None]
